FAERS Safety Report 8793584 (Version 1)
Quarter: 2012Q4

REPORT INFORMATION
  Report Type: Report from Study
  Country: US (occurrence: US)
  Receive Date: 20120917
  Receipt Date: 20120917
  Transmission Date: 20130627
  Serious: Yes (Life-Threatening, Hospitalization)
  Sender: FDA-Public Use
  Company Number: US-GLAXOSMITHKLINE-A0978641B

PATIENT
  Age: 82 Year
  Sex: Female
  Weight: 73.9 kg

DRUGS (8)
  1. PAZOPANIB [Suspect]
     Indication: UTERINE CANCER
     Dosage: 800MG In the morning
     Route: 048
     Dates: start: 20111216
  2. RADIATION [Suspect]
     Indication: PRODUCT USED FOR UNKNOWN INDICATION
  3. ACTOS [Concomitant]
  4. AMBIEN [Concomitant]
  5. DIOVAN HCTZ [Concomitant]
  6. IMODIUM [Concomitant]
  7. LIPITOR [Concomitant]
  8. VITAMIN D [Concomitant]

REACTIONS (3)
  - Anaemia [Recovering/Resolving]
  - Proctitis [Recovering/Resolving]
  - Rectal haemorrhage [Recovering/Resolving]
